FAERS Safety Report 19255031 (Version 1)
Quarter: 2021Q2

REPORT INFORMATION
  Report Type: Spontaneous
  Country: US (occurrence: US)
  Receive Date: 20210513
  Receipt Date: 20210513
  Transmission Date: 20210717
  Serious: Yes (Hospitalization)
  Sender: FDA-Public Use
  Company Number: US-ROCHE-2760662

PATIENT
  Age: 71 Year
  Sex: Male

DRUGS (6)
  1. GAVRETO [Suspect]
     Active Substance: PRALSETINIB
     Indication: LUNG NEOPLASM MALIGNANT
     Route: 048
     Dates: start: 20201221, end: 20210112
  2. METFORMIN [Concomitant]
     Active Substance: METFORMIN HYDROCHLORIDE
     Indication: DIABETES MELLITUS
  3. SYMBICORT [Concomitant]
     Active Substance: BUDESONIDE\FORMOTEROL FUMARATE DIHYDRATE
     Indication: CHRONIC OBSTRUCTIVE PULMONARY DISEASE
  4. ADVAIR HFA [Concomitant]
     Active Substance: FLUTICASONE PROPIONATE\SALMETEROL XINAFOATE
     Indication: CHRONIC OBSTRUCTIVE PULMONARY DISEASE
     Route: 065
  5. METOPROLOL. [Concomitant]
     Active Substance: METOPROLOL
     Indication: HYPERTENSION
  6. AMLODIPINE [Concomitant]
     Active Substance: AMLODIPINE BESYLATE
     Indication: HYPERTENSION
     Route: 048

REACTIONS (14)
  - Hypochloraemia [Unknown]
  - Blood creatinine increased [Recovering/Resolving]
  - Troponin increased [Unknown]
  - Rash [Recovering/Resolving]
  - Blood sodium decreased [Recovering/Resolving]
  - Chronic kidney disease [Recovered/Resolved]
  - Hyponatraemia [Recovering/Resolving]
  - Hepatic enzyme increased [Unknown]
  - Liver function test increased [Recovering/Resolving]
  - Myocardial necrosis marker increased [Unknown]
  - Lactic acidosis [Unknown]
  - Pancreatic enzymes increased [Unknown]
  - Blood calcium increased [Recovering/Resolving]
  - Transaminases increased [Recovering/Resolving]

NARRATIVE: CASE EVENT DATE: 20201228
